FAERS Safety Report 13668827 (Version 3)
Quarter: 2018Q4

REPORT INFORMATION
  Report Type: Spontaneous
  Country: US (occurrence: US)
  Receive Date: 20170620
  Receipt Date: 20181218
  Transmission Date: 20190204
  Serious: Yes (Disabling, Other)
  Sender: FDA-Public Use
  Company Number: US-OTSUKA-2017_013494

PATIENT
  Sex: Male

DRUGS (13)
  1. ABILIFY [Suspect]
     Active Substance: ARIPIPRAZOLE
     Dosage: 30 MG, QD
     Route: 065
     Dates: end: 201605
  2. GABAPENTIN. [Concomitant]
     Active Substance: GABAPENTIN
     Indication: PRODUCT USED FOR UNKNOWN INDICATION
     Dosage: 1 DF, TID
     Route: 048
     Dates: start: 20170110, end: 20180111
  3. ABILIFY [Suspect]
     Active Substance: ARIPIPRAZOLE
     Indication: SCHIZOPHRENIA
     Dosage: 10 MG, QD
     Route: 065
     Dates: start: 200304
  4. ABILIFY [Suspect]
     Active Substance: ARIPIPRAZOLE
     Indication: DEPRESSION
     Dosage: 15 MG, QD
     Route: 065
  5. ABILIFY [Suspect]
     Active Substance: ARIPIPRAZOLE
     Indication: ANXIETY
     Dosage: 20 MG, QD
     Route: 065
  6. PRAZOSIN HCL [Concomitant]
     Active Substance: PRAZOSIN HYDROCHLORIDE
     Indication: NIGHTMARE
     Dosage: 1 DF, AT BEDTIME
     Route: 048
     Dates: start: 20170626, end: 20180627
  7. ABILIFY MAINTENA [Suspect]
     Active Substance: ARIPIPRAZOLE
     Indication: PRODUCT USED FOR UNKNOWN INDICATION
     Dosage: 400 MG, UNK
     Route: 065
  8. OLANZAPINE. [Concomitant]
     Active Substance: OLANZAPINE
     Indication: PRODUCT USED FOR UNKNOWN INDICATION
     Dosage: 1 DF, BEDTIME
     Route: 048
  9. TRAZODONE HYDROCHLORIDE. [Concomitant]
     Active Substance: TRAZODONE HYDROCHLORIDE
     Indication: SLEEP DISORDER
     Dosage: 1 DF, AT BEDTIME
     Route: 048
     Dates: start: 20170626, end: 20180627
  10. ATENOLOL/CHLORTHALIDONE [Concomitant]
     Active Substance: ATENOLOL\CHLORTHALIDONE
     Indication: BLOOD PRESSURE MEASUREMENT
     Dosage: 1 DF, QD
     Route: 048
     Dates: start: 20170112, end: 20180113
  11. SIMVASTATIN. [Concomitant]
     Active Substance: SIMVASTATIN
     Indication: BLOOD CHOLESTEROL ABNORMAL
     Dosage: TAKE ON HALF TABLET EVERY EVENING
     Route: 048
     Dates: start: 20170112, end: 20170112
  12. FLUOXETINE HCL [Concomitant]
     Active Substance: FLUOXETINE HYDROCHLORIDE
     Indication: DEPRESSION
     Dosage: 2 DF, QD
     Route: 048
     Dates: start: 20170626, end: 20180627
  13. ATENOLOL. [Concomitant]
     Active Substance: ATENOLOL
     Indication: BLOOD PRESSURE MEASUREMENT
     Dosage: ONE HALF TABLET DAILY
     Route: 048

REACTIONS (26)
  - Disability [Unknown]
  - Arteriosclerosis coronary artery [Unknown]
  - Accommodation disorder [Unknown]
  - Pain [Unknown]
  - Hyperglycaemia [Unknown]
  - Compulsive sexual behaviour [Recovered/Resolved]
  - Suicide attempt [Recovered/Resolved]
  - Emotional distress [Unknown]
  - Nightmare [Unknown]
  - Economic problem [Unknown]
  - Product use in unapproved indication [Unknown]
  - Prostatic specific antigen increased [Unknown]
  - Divorced [Unknown]
  - Suicidal ideation [Recovered/Resolved]
  - Condition aggravated [Recovered/Resolved]
  - Type 2 diabetes mellitus [Unknown]
  - Anxiety [Unknown]
  - Circadian rhythm sleep disorder [Unknown]
  - Sexual dysfunction [Recovered/Resolved]
  - Depression [Unknown]
  - Essential hypertension [Unknown]
  - Loss of employment [Unknown]
  - Injury [Unknown]
  - Back pain [Unknown]
  - Insomnia [Unknown]
  - Gambling disorder [Recovered/Resolved]

NARRATIVE: CASE EVENT DATE: 2003
